FAERS Safety Report 21518733 (Version 1)
Quarter: 2022Q4

REPORT INFORMATION
  Report Type: Report from Study
  Country: BR (occurrence: BR)
  Receive Date: 20221028
  Receipt Date: 20221028
  Transmission Date: 20230113
  Serious: Yes (Other)
  Sender: FDA-Public Use
  Company Number: BR-NOVARTISPH-NVSC2022BR240478

PATIENT
  Sex: Female

DRUGS (1)
  1. METFORMIN HYDROCHLORIDE\VILDAGLIPTIN [Suspect]
     Active Substance: METFORMIN HYDROCHLORIDE\VILDAGLIPTIN
     Indication: Diabetes mellitus
     Dosage: UNK, (STRENGTH: 50/1000), FOR 15 YEARS
     Route: 065
     Dates: start: 2008

REACTIONS (3)
  - Neoplasm malignant [Unknown]
  - Blood pressure abnormal [Unknown]
  - Illness [Unknown]

NARRATIVE: CASE EVENT DATE: 20080101
